FAERS Safety Report 6476816-7 (Version None)
Quarter: 2009Q4

REPORT INFORMATION
  Report Type: 
  Country: None (occurrence: None)
  Receive Date: 20091207
  Receipt Date: 20091130
  Transmission Date: 20100525
  Serious: Yes (Other)
  Sender: FDA-Public Use
  Company Number: TW-ROCHE-672441

PATIENT
  Sex: Male
  Weight: 70 kg

DRUGS (3)
  1. INTERFERON ALFA [Suspect]
     Dosage: DOSE: 9 MIU
     Route: 058
     Dates: start: 20091113, end: 20091128
  2. BEVACIZUMAB [Suspect]
     Route: 042
     Dates: start: 20091113, end: 20091128
  3. ACETAMINOPHEN [Concomitant]
     Indication: PROPHYLAXIS
     Dates: start: 20091113

REACTIONS (1)
  - HAEMOPTYSIS [None]
